FAERS Safety Report 5274246-7 (Version None)
Quarter: 2007Q1

REPORT INFORMATION
  Report Type: 
  Country: None (occurrence: None)
  Receive Date: 20070323
  Receipt Date: 20070312
  Transmission Date: 20070707
  Serious: Yes (Other)
  Sender: FDA-Public Use
  Company Number: CA-JNJFOC-20070302699

PATIENT
  Age: 82 Year
  Sex: Female
  Weight: 51 kg

DRUGS (11)
  1. REMICADE [Suspect]
     Route: 042
  2. REMICADE [Suspect]
     Route: 042
  3. REMICADE [Suspect]
     Route: 042
  4. REMICADE [Suspect]
     Indication: DRUG USE FOR UNKNOWN INDICATION
     Route: 042
  5. ACTONEL [Concomitant]
     Indication: OSTEOPOROSIS
     Route: 048
  6. CELEBREX [Concomitant]
     Indication: ARTHRITIS
     Route: 048
  7. CALCIUM WITH VITAMIN D [Concomitant]
     Indication: OSTEOPOROSIS
     Dosage: 500/400 MG
     Route: 048
  8. DICAPEX [Concomitant]
     Indication: ARTHRITIS
     Route: 048
  9. METHOTREXATE [Concomitant]
     Indication: ARTHRITIS
     Route: 048
  10. FOLIC ACID [Concomitant]
     Indication: PROPHYLAXIS
     Route: 048
  11. PANTOPRAZOLE SODIUM [Concomitant]
     Indication: DYSPEPSIA
     Route: 048

REACTIONS (1)
  - DEMENTIA ALZHEIMER'S TYPE [None]
